FAERS Safety Report 7198021-1 (Version None)
Quarter: 2010Q4

REPORT INFORMATION
  Report Type: 
  Country: None (occurrence: None)
  Receive Date: 20101227
  Receipt Date: 20101220
  Transmission Date: 20110411
  Serious: Yes (Other)
  Sender: FDA-Public Use
  Company Number: CN-ROCHE-749303

PATIENT
  Age: 70 Year
  Sex: Male

DRUGS (2)
  1. AVASTIN [Suspect]
     Indication: GASTROINTESTINAL CANCER METASTATIC
     Route: 065
  2. FOLFOX REGIMEN [Concomitant]
     Indication: GASTROINTESTINAL CANCER METASTATIC

REACTIONS (4)
  - HYDRONEPHROSIS [None]
  - RENAL ATROPHY [None]
  - URETERIC DILATATION [None]
  - URETERIC OBSTRUCTION [None]
